FAERS Safety Report 8343463-1 (Version None)
Quarter: 2012Q2

REPORT INFORMATION
  Report Type: 
  Country: None (occurrence: None)
  Receive Date: 20120508
  Receipt Date: 20120503
  Transmission Date: 20120825
  Serious: Yes (Other)
  Sender: FDA-Public Use
  Company Number: PHHY2012AR038434

PATIENT
  Sex: Female

DRUGS (1)
  1. GLEEVEC [Suspect]
     Dosage: 400 MG, DAILY
     Dates: start: 20050101

REACTIONS (3)
  - VOMITING [None]
  - COLON CANCER [None]
  - PROCEDURAL PAIN [None]
